FAERS Safety Report 7600890-5 (Version None)
Quarter: 2011Q3

REPORT INFORMATION
  Report Type: 
  Country: None (occurrence: None)
  Receive Date: 20110708
  Receipt Date: 20110708
  Transmission Date: 20111222
  Serious: Yes (Other)
  Sender: FDA-Public Use
  Company Number: None

PATIENT
  Age: 24 Year
  Sex: Female
  Weight: 136.0791 kg

DRUGS (1)
  1. LAMOTRIGINE [Suspect]
     Indication: AFFECTIVE DISORDER
     Dosage: 200MG QD BY MOUTH
     Route: 048
     Dates: start: 20100201, end: 20100501

REACTIONS (4)
  - PRODUCT SUBSTITUTION ISSUE [None]
  - IRRITABILITY [None]
  - MOOD ALTERED [None]
  - ILL-DEFINED DISORDER [None]
